FAERS Safety Report 26057850 (Version 1)
Quarter: 2025Q4

REPORT INFORMATION
  Report Type: Spontaneous
  Country: EU (occurrence: EU)
  Receive Date: 20251118
  Receipt Date: 20251118
  Transmission Date: 20260117
  Serious: Yes (Hospitalization, Congenital Anomaly, Other)
  Sender: SAMSUNG BIOEPIS
  Company Number: EU-EMB-M202406671-1

PATIENT
  Sex: Male

DRUGS (4)
  1. IMRALDI [Suspect]
     Active Substance: ADALIMUMAB
     Indication: Rheumatoid arthritis
     Route: 064
     Dates: start: 202403, end: 202411
  2. METHYLDOPA [Suspect]
     Active Substance: METHYLDOPA
     Indication: Hypertension
     Dosage: 125 -250 MG/D;
     Route: 064
     Dates: start: 202403, end: 202411
  3. REPEVAX [Concomitant]
     Active Substance: DIPHTHERIA AND TETANUS TOXOIDS AND ACELLULAR PERTUSSIS ADSORBED AND INACTIVATED POLIOVIRUS VACCINE
     Indication: Immunisation
     Route: 064
     Dates: start: 202410, end: 202410
  4. Comirnaty [Concomitant]
     Indication: COVID-19 immunisation
     Route: 064
     Dates: start: 202411, end: 202411

REACTIONS (6)
  - Microcephaly [Recovering/Resolving]
  - Retrognathia [Not Recovered/Not Resolved]
  - Pyelocaliectasis [Not Recovered/Not Resolved]
  - Skin malformation [Not Recovered/Not Resolved]
  - Foetal exposure during pregnancy [Unknown]
  - Product use issue [Unknown]

NARRATIVE: CASE EVENT DATE: 20241101
